FAERS Safety Report 12591467 (Version 2)
Quarter: 2016Q3

REPORT INFORMATION
  Report Type: Spontaneous
  Country: US (occurrence: US)
  Receive Date: 20160726
  Receipt Date: 20160726
  Transmission Date: 20161109
  Serious: No
  Sender: FDA-Public Use
  Company Number: US-UNITED THERAPEUTICS-UNT-2016-000423

PATIENT
  Age: 67 Year
  Sex: Female
  Weight: 122.45 kg

DRUGS (1)
  1. REMODULIN [Suspect]
     Active Substance: TREPROSTINIL
     Indication: PULMONARY ARTERIAL HYPERTENSION
     Dosage: 0.0725 ?G/KG/MIN, CONTINUING
     Route: 058
     Dates: start: 20020712

REACTIONS (3)
  - Dyspnoea [Unknown]
  - Therapy cessation [Unknown]
  - Device issue [Unknown]

NARRATIVE: CASE EVENT DATE: 20160108
